FAERS Safety Report 15183265 (Version 1)
Quarter: 2018Q3

REPORT INFORMATION
  Report Type: Spontaneous
  Country: IT (occurrence: IT)
  Receive Date: 20180723
  Receipt Date: 20180723
  Transmission Date: 20181010
  Serious: Yes (Hospitalization, Other)
  Sender: FDA-Public Use
  Company Number: IT-MYLANLABS-2018M1053397

PATIENT
  Age: 48 Year
  Sex: Female

DRUGS (2)
  1. IDARUBICIN [Suspect]
     Active Substance: IDARUBICIN
     Indication: ACUTE MYELOMONOCYTIC LEUKAEMIA
     Dosage: UNK
     Route: 065
  2. CYTARABINE. [Suspect]
     Active Substance: CYTARABINE
     Indication: ACUTE MYELOMONOCYTIC LEUKAEMIA
     Dosage: UNK
     Route: 065

REACTIONS (4)
  - Bacterial sepsis [Recovered/Resolved]
  - Septic shock [Recovered/Resolved]
  - Hyperlactacidaemia [Unknown]
  - Metabolic acidosis [Unknown]
